FAERS Safety Report 6347390-0 (Version None)
Quarter: 2009Q3

REPORT INFORMATION
  Report Type: 
  Country: None (occurrence: None)
  Receive Date: 20090910
  Receipt Date: 20090903
  Transmission Date: 20100115
  Serious: Yes (Other)
  Sender: FDA-Public Use
  Company Number: US-AVENTIS-200916564US

PATIENT
  Sex: Female

DRUGS (1)
  1. LANTUS [Suspect]
     Route: 058
     Dates: start: 20080601

REACTIONS (3)
  - DEVICE MALFUNCTION [None]
  - ERUCTATION [None]
  - HYPOGLYCAEMIC UNCONSCIOUSNESS [None]
